FAERS Safety Report 25965761 (Version 1)
Quarter: 2025Q4

REPORT INFORMATION
  Report Type: Report from Study
  Country: US (occurrence: US)
  Receive Date: 20251027
  Receipt Date: 20251027
  Transmission Date: 20260118
  Serious: Yes (Hospitalization)
  Sender: ABBVIE
  Company Number: US-ABBVIE-6485149

PATIENT
  Age: 18 Year
  Sex: Female
  Weight: 58.059 kg

DRUGS (5)
  1. SKYRIZI [Suspect]
     Active Substance: RISANKIZUMAB-RZAA
     Indication: Crohn^s disease
     Dosage: TIME INTERVAL: TOTAL: DOSE FORM: SOLUTION FOR INJECTION IN PRE-FILLED INJECTOR?STRENGTH-180MG?WEE...
     Route: 058
     Dates: start: 20250804, end: 20250804
  2. SKYRIZI [Suspect]
     Active Substance: RISANKIZUMAB-RZAA
     Dosage: DOSE FORM: SOLUTION FOR INJECTION IN PRE-FILLED INJECTOR?STRENGTH-180MG
     Route: 058
     Dates: start: 202505
  3. SKYRIZI [Suspect]
     Active Substance: RISANKIZUMAB-RZAA
     Indication: Crohn^s disease
     Dosage: TIME INTERVAL: TOTAL: DOSE FORM: SOLUTION FOR INFUSION?STRENGTH-600MG?WEEK-0
     Route: 042
     Dates: start: 202505, end: 202505
  4. SKYRIZI [Suspect]
     Active Substance: RISANKIZUMAB-RZAA
     Indication: Crohn^s disease
     Dosage: TIME INTERVAL: TOTAL: DOSE FORM: SOLUTION FOR INFUSION?STRENGTH-600MG?WEEK-4
     Route: 042
     Dates: start: 202506, end: 202506
  5. SKYRIZI [Suspect]
     Active Substance: RISANKIZUMAB-RZAA
     Indication: Crohn^s disease
     Dosage: TIME INTERVAL: TOTAL: DOSE FORM: SOLUTION FOR INFUSION?STRENGTH-600MG?WEEK-8
     Route: 042
     Dates: start: 202507, end: 202507

REACTIONS (4)
  - Hodgkin^s disease [Recovered/Resolved]
  - Malaise [Unknown]
  - Fatigue [Unknown]
  - Pyrexia [Unknown]

NARRATIVE: CASE EVENT DATE: 20250929
